FAERS Safety Report 23482794 (Version 1)
Quarter: 2024Q1

REPORT INFORMATION
  Report Type: Spontaneous
  Country: CN (occurrence: CN)
  Receive Date: 20240205
  Receipt Date: 20240205
  Transmission Date: 20240410
  Serious: Yes (Hospitalization, Other)
  Sender: FDA-Public Use
  Company Number: None

PATIENT
  Age: 49 Year
  Sex: Female
  Weight: 55 kg

DRUGS (4)
  1. CYCLOPHOSPHAMIDE [Suspect]
     Active Substance: CYCLOPHOSPHAMIDE
     Indication: Breast cancer female
     Dosage: 0.9 G, ONE TIME IN ONE DAY, LYOPHILIZED POWDER, DILUTED WITH 0.9% SODIUM CHLORIDE 50ML, COMBINED CHE
     Route: 041
     Dates: start: 20231223, end: 20231223
  2. SODIUM CHLORIDE [Suspect]
     Active Substance: SODIUM CHLORIDE
     Indication: Medication dilution
     Dosage: 50ML, ONE TIME IN ONE DAY, DOSAGE FORM: INJECTION, STRENGTH: 0.9%, USED TO DILUTE CYCLOPHOSPHAMIDE 0
     Route: 041
     Dates: start: 20231223, end: 20231223
  3. SODIUM CHLORIDE [Suspect]
     Active Substance: SODIUM CHLORIDE
     Dosage: 100ML, ONE TIME IN ONE DAY, DOSAGE FORM: INJECTION, STRENGTH: 0.9%, USED TO DILUTE EPIRUBICIN 130MG
     Route: 041
     Dates: start: 20231223, end: 20231223
  4. EPIRUBICIN HYDROCHLORIDE [Suspect]
     Active Substance: EPIRUBICIN HYDROCHLORIDE
     Indication: Breast cancer female
     Dosage: 130 MG, ONE TIME IN ONE DAY, DILUTED WITH 0.9% SODIUM CHLORIDE 100ML, COMBINED CHEMOTHERAPY
     Route: 041
     Dates: start: 20231223, end: 20231223

REACTIONS (3)
  - Myelosuppression [Recovered/Resolved]
  - White blood cell count decreased [Recovered/Resolved]
  - Body temperature increased [Recovered/Resolved]

NARRATIVE: CASE EVENT DATE: 20240102
